FAERS Safety Report 8290143 (Version 2)
Quarter: 2013Q2

REPORT INFORMATION
  Report Type: Spontaneous
  Country: US (occurrence: None)
  Receive Date: 20111122
  Receipt Date: 20121031
  Transmission Date: 20140414
  Serious: No
  Sender: FDA-Public Use
  Company Number: PHHY2011US56280

PATIENT
  Age: 52 Year
  Sex: Female

DRUGS (11)
  1. GILENYA [Suspect]
     Indication: RELAPSING-REMITTING MULTIPLE SCLEROSIS
     Route: 048
     Dates: start: 20110325, end: 20120620
  2. FAMPRIDINE (FAMPRIDINE) [Concomitant]
  3. TENORMIN [Concomitant]
  4. LIORESAL [Concomitant]
  5. ZOLOFT [Concomitant]
  6. XANAX [Concomitant]
  7. VITAMIN D3 (COLECALCIFEROL) [Concomitant]
  8. MAGNESIUM (MAGNESIUM) [Concomitant]
  9. CITRACAL + D (CALCIUM CITRATE, ERGOCALCIFEROL) [Concomitant]
  10. BACLOFEN [Concomitant]
  11. ATENOLOL (ATENOLOL) [Concomitant]

REACTIONS (11)
  - HOT FLUSH [None]
  - NAUSEA [None]
  - ABDOMINAL PAIN [None]
  - FATIGUE [None]
  - MUSCULOSKELETAL STIFFNESS [None]
  - MOBILITY DECREASED [None]
  - GAIT DISTURBANCE [None]
  - NASAL CONGESTION [None]
  - HEADACHE [None]
  - HEART RATE DECREASED [None]
  - Drug ineffective [None]
